FAERS Safety Report 18205987 (Version 1)
Quarter: 2020Q3

REPORT INFORMATION
  Report Type: Spontaneous
  Country: GB (occurrence: GB)
  Receive Date: 20200828
  Receipt Date: 20200828
  Transmission Date: 20201103
  Serious: Yes (Hospitalization, Other)
  Sender: FDA-Public Use
  Company Number: GB-TEVA-2020-GB-1820563

PATIENT
  Sex: Male

DRUGS (2)
  1. MYFENAX [Suspect]
     Active Substance: MYCOPHENOLATE MOFETIL
     Dosage: 1000 MILLIGRAM DAILY;
     Route: 065
  2. PROGRAF [Concomitant]
     Active Substance: TACROLIMUS
     Dosage: 8 MILLIGRAM DAILY;

REACTIONS (2)
  - Lower respiratory tract infection [Unknown]
  - Pyrexia [Unknown]
